FAERS Safety Report 4604626-1 (Version None)
Quarter: 2005Q1

REPORT INFORMATION
  Report Type: 
  Country: None (occurrence: None)
  Receive Date: 20050116
  Receipt Date: 20041101
  Transmission Date: 20050727
  Serious: No
  Sender: FDA-Public Use
  Company Number: PHEH2004US10427

PATIENT
  Age: 52 Year
  Sex: Female

DRUGS (4)
  1. GLEEVEC [Suspect]
     Indication: CHRONIC MYELOID LEUKAEMIA
     Dosage: 400 MG, QD, ORAL
     Route: 048
     Dates: start: 20040920
  2. PRENOVIL [Concomitant]
  3. SYNTHROID [Concomitant]
  4. ACIPHEX [Concomitant]

REACTIONS (4)
  - ANAEMIA [None]
  - ARTHRALGIA [None]
  - PAIN [None]
  - SKIN IRRITATION [None]
